FAERS Safety Report 6312807-4 (Version None)
Quarter: 2009Q3

REPORT INFORMATION
  Report Type: 
  Country: None (occurrence: None)
  Receive Date: 20090818
  Receipt Date: 20090810
  Transmission Date: 20100115
  Serious: Yes (Hospitalization, Other)
  Sender: FDA-Public Use
  Company Number: US-JNJFOC-20090803655

PATIENT
  Sex: Female
  Weight: 53.98 kg

DRUGS (7)
  1. FENTANYL TRANSDERMAL SYSTEM [Suspect]
     Indication: NECK PAIN
     Route: 062
  2. SOMA [Concomitant]
     Indication: PAIN
     Route: 048
  3. LORAZEPAM [Concomitant]
     Indication: ANXIETY
     Route: 048
  4. NEURONTIN [Concomitant]
     Indication: APHASIA
     Route: 048
  5. LIDODERM [Concomitant]
     Indication: PAIN
     Route: 061
  6. ASPIRIN [Concomitant]
     Indication: CARDIAC DISORDER
     Route: 048
  7. DARVOCET [Concomitant]
     Indication: PAIN
     Dosage: DOSE: 100-650 MG
     Route: 048

REACTIONS (5)
  - CONVULSION [None]
  - INFECTION [None]
  - MONOPLEGIA [None]
  - PERIPHERAL NERVE LESION [None]
  - VOMITING [None]
